FAERS Safety Report 12448408 (Version 4)
Quarter: 2016Q4

REPORT INFORMATION
  Report Type: Report from Study
  Country: CA (occurrence: CA)
  Receive Date: 20160608
  Receipt Date: 20161107
  Transmission Date: 20170207
  Serious: Yes (Hospitalization, Other)
  Sender: FDA-Public Use
  Company Number: CA-INCYTE CORPORATION-2016IN001498

PATIENT
  Age: 55 Year
  Sex: Female

DRUGS (17)
  1. JAKAVI [Suspect]
     Active Substance: RUXOLITINIB
     Indication: POLYCYTHAEMIA VERA
     Dosage: 10 MG, BID
     Route: 048
     Dates: start: 20160223
  2. VITAMINS NOS [Concomitant]
     Active Substance: VITAMINS
     Indication: PRODUCT USED FOR UNKNOWN INDICATION
     Route: 065
  3. NADOLOL. [Concomitant]
     Active Substance: NADOLOL
     Dosage: 40 MG, QD
     Route: 065
  4. PANTOPRAZOLE [Concomitant]
     Active Substance: PANTOPRAZOLE SODIUM
     Indication: PRODUCT USED FOR UNKNOWN INDICATION
     Dosage: 40 MG, QD
     Route: 065
  5. VITAMINS NOS [Concomitant]
     Active Substance: VITAMINS
     Route: 065
  6. NADOLOL. [Concomitant]
     Active Substance: NADOLOL
     Dosage: 40 MG, QD
     Route: 065
  7. VITAMINS NOS [Concomitant]
     Active Substance: VITAMINS
     Route: 065
  8. COUMADIN [Concomitant]
     Active Substance: WARFARIN SODIUM
     Dosage: DOSE ALTERNATES BETWEEN 10 AND 12
     Route: 065
  9. NADOLOL. [Concomitant]
     Active Substance: NADOLOL
     Indication: PRODUCT USED FOR UNKNOWN INDICATION
     Dosage: 40 MG, QD
     Route: 065
  10. NADOLOL. [Concomitant]
     Active Substance: NADOLOL
     Dosage: 40 MG, QD
     Route: 065
  11. VITAMINS NOS [Concomitant]
     Active Substance: VITAMINS
     Route: 065
  12. PANTOPRAZOLE [Concomitant]
     Active Substance: PANTOPRAZOLE SODIUM
     Dosage: 40 MG, QD
     Route: 065
  13. NADOLOL. [Concomitant]
     Active Substance: NADOLOL
     Dosage: 40 MG, QD
     Route: 065
  14. COUMADIN [Concomitant]
     Active Substance: WARFARIN SODIUM
     Indication: PRODUCT USED FOR UNKNOWN INDICATION
     Dosage: 12 MG, QD
     Route: 065
  15. COUMADIN [Concomitant]
     Active Substance: WARFARIN SODIUM
     Dosage: 12 MG, QOD (DOSE ALTERNATES BETWEEN 10 AND 12)
  16. PANTOPRAZOLE [Concomitant]
     Active Substance: PANTOPRAZOLE SODIUM
     Dosage: 40 MG, QD
     Route: 065
  17. VITAMINS NOS [Concomitant]
     Active Substance: VITAMINS
     Route: 065

REACTIONS (22)
  - Feeling abnormal [Unknown]
  - Photophobia [Unknown]
  - Acne [Unknown]
  - Posture abnormal [Unknown]
  - Musculoskeletal stiffness [Unknown]
  - Hypersomnia [Unknown]
  - Skin haemorrhage [Unknown]
  - Gastric disorder [Unknown]
  - Malaise [Unknown]
  - Cerebrovascular accident [Unknown]
  - Renal pain [Unknown]
  - Gastric dilatation [Unknown]
  - Immune system disorder [Unknown]
  - Rectal haemorrhage [Unknown]
  - Weight increased [Unknown]
  - Thrombosis [Unknown]
  - International normalised ratio increased [Unknown]
  - Abdominal distension [Unknown]
  - Dysphagia [Unknown]
  - Abdominal pain [Unknown]
  - Muscle spasms [Unknown]
  - Constipation [Unknown]

NARRATIVE: CASE EVENT DATE: 20160526
